FAERS Safety Report 9948252 (Version 1)
Quarter: 2014Q1

REPORT INFORMATION
  Report Type: Report from Study
  Country: US (occurrence: US)
  Receive Date: 20140303
  Receipt Date: 20140303
  Transmission Date: 20141002
  Serious: No
  Sender: FDA-Public Use
  Company Number: US-ABBVIE-13P-163-1057910-00

PATIENT
  Age: 43 Year
  Sex: Male

DRUGS (5)
  1. HUMIRA [Suspect]
     Indication: PSORIATIC ARTHROPATHY
     Dates: start: 20130301
  2. NAPROXEN [Concomitant]
     Indication: ARTHRITIS
     Dosage: 500 MG DAILY
  3. PREDNISONE [Concomitant]
     Indication: PRODUCT USED FOR UNKNOWN INDICATION
  4. CLOBETASOL 0.05% [Concomitant]
     Indication: PSORIASIS
     Dosage: 0.05 TWICE A WEEK, TWICE DAILY
  5. DOVENEX [Concomitant]
     Indication: PSORIASIS
     Dosage: 0.05 FIVE DAYS A WEEK, TWICE DAILY

REACTIONS (2)
  - Incorrect dose administered [Recovered/Resolved]
  - Injection site pain [Recovered/Resolved]
